FAERS Safety Report 4342294-7 (Version None)
Quarter: 2004Q2

REPORT INFORMATION
  Report Type: 
  Country: None (occurrence: None)
  Receive Date: 20040415
  Receipt Date: 20040405
  Transmission Date: 20050107
  Serious: Yes (Other)
  Sender: FDA-Public Use
  Company Number: 200403605

PATIENT
  Sex: Female

DRUGS (3)
  1. IMODIUM A-D (LOPERAMIDE HYDROCHLORIDE) 2 MG CAPSULES [Suspect]
     Indication: DIARRHOEA
     Dosage: 6 MG, PO, TOTAL
     Route: 048
     Dates: start: 20040404
  2. WINE [Suspect]
     Dosage: 1 GLASS, PO, TOTAL
     Route: 048
     Dates: start: 20040404
  3. SYNTHROID [Concomitant]

REACTIONS (5)
  - ALCOHOL INTERACTION [None]
  - BLOOD ALCOHOL INCREASED [None]
  - DRUG EFFECT INCREASED [None]
  - ROAD TRAFFIC ACCIDENT [None]
  - VOMITING [None]
